FAERS Safety Report 15158597 (Version 1)
Quarter: 2018Q3

REPORT INFORMATION
  Report Type: Spontaneous
  Country: IL (occurrence: IL)
  Receive Date: 20180718
  Receipt Date: 20180718
  Transmission Date: 20181010
  Serious: Yes (Death, Other)
  Sender: FDA-Public Use
  Company Number: PHHY2018IL043372

PATIENT
  Sex: Female

DRUGS (4)
  1. PREDNISONE. [Suspect]
     Active Substance: PREDNISONE
     Indication: FOETAL EXPOSURE DURING PREGNANCY
     Dosage: 10 MG, QD
     Route: 065
  2. ETANERCEPT [Suspect]
     Active Substance: ETANERCEPT
     Indication: FOETAL EXPOSURE DURING PREGNANCY
     Dosage: 25 MG, UNK (ONCE EVERY 3 DAYS)
     Route: 065
  3. HYDROXYCHLOROQUINE [Suspect]
     Active Substance: HYDROXYCHLOROQUINE
     Indication: FOETAL EXPOSURE DURING PREGNANCY
     Dosage: 200 MG, QD
     Route: 065
  4. ENOXAPARIN [Suspect]
     Active Substance: ENOXAPARIN
     Indication: FOETAL EXPOSURE DURING PREGNANCY
     Dosage: 120 MG, QD
     Route: 065

REACTIONS (12)
  - Hypertrophy [Fatal]
  - Multiple organ dysfunction syndrome [Fatal]
  - Renal impairment [Fatal]
  - Intravascular papillary endothelial hyperplasia [Fatal]
  - Staphylococcal sepsis [Fatal]
  - Premature baby [Unknown]
  - Haemorrhage [Fatal]
  - Ecchymosis [Fatal]
  - Hydrops foetalis [Fatal]
  - Generalised oedema [Fatal]
  - Purpura [Fatal]
  - Foetal exposure during pregnancy [Unknown]
